FAERS Safety Report 6722102-7 (Version None)
Quarter: 2010Q2

REPORT INFORMATION
  Report Type: 
  Country: None (occurrence: None)
  Receive Date: 20100510
  Receipt Date: 20100429
  Transmission Date: 20101027
  Serious: Yes (Hospitalization)
  Sender: FDA-Public Use
  Company Number: 1000013673

PATIENT
  Age: 87 Year
  Sex: Female

DRUGS (9)
  1. MEMANTINE HCL [Suspect]
     Indication: DEMENTIA ALZHEIMER'S TYPE
     Dosage: 15 MG (15 MG, 1 IN 1 D), ORAL
     Route: 048
     Dates: start: 20100113, end: 20100118
  2. MEMANTINE HCL [Suspect]
     Indication: DEMENTIA ALZHEIMER'S TYPE
     Dosage: 5 MG (5 MG, 1 IN 1 D), ORAL, 10 MG (10 MG, 1 IN 1 D), ORAL
     Route: 048
     Dates: start: 20091215, end: 20091228
  3. MEMANTINE HCL [Suspect]
     Indication: DEMENTIA ALZHEIMER'S TYPE
     Dosage: 5 MG (5 MG, 1 IN 1 D), ORAL, 10 MG (10 MG, 1 IN 1 D), ORAL
     Route: 048
     Dates: start: 20091229, end: 20100112
  4. PLAVIX [Suspect]
     Indication: ISCHAEMIC STROKE
     Dosage: 75 MG (75 MG, 1 IN 1 D), ORAL
     Route: 048
     Dates: start: 20081001
  5. EQUANIL [Suspect]
     Indication: INSOMNIA
     Dosage: ORAL, 650 MG (650 MG, 1 IN 1 D), ORAL
     Route: 048
     Dates: start: 20081001, end: 20091214
  6. EQUANIL [Suspect]
     Indication: INSOMNIA
     Dosage: ORAL, 650 MG (650 MG, 1 IN 1 D), ORAL
     Route: 048
     Dates: start: 20091215
  7. FORLAX (POWDER) [Suspect]
     Indication: CONSTIPATION
     Dosage: (10 MG, AS REQUIRED), ORAL
     Route: 048
     Dates: start: 20091201
  8. REMINYL [Suspect]
     Dosage: 16 MG (16 MG, 1 IN 1 D)
     Dates: end: 20091215
  9. NOROXIN [Suspect]
     Indication: ESCHERICHIA INFECTION
     Dosage: 2 DOSAGE FORMS (1 DOSAGE FORMS, 2 IN 1 D), ORAL
     Route: 048
     Dates: start: 20091214, end: 20091218

REACTIONS (4)
  - AGGRESSION [None]
  - AGITATION [None]
  - CHOLESTASIS [None]
  - CYTOLYTIC HEPATITIS [None]
